FAERS Safety Report 9724555 (Version 1)
Quarter: 2013Q4

REPORT INFORMATION
  Report Type: Spontaneous
  Country: US (occurrence: US)
  Receive Date: 20131202
  Receipt Date: 20131202
  Transmission Date: 20140711
  Serious: No
  Sender: FDA-Public Use
  Company Number: US-AMGEN-USASP2013081307

PATIENT
  Age: 19 Year
  Sex: Male

DRUGS (1)
  1. ENBREL [Suspect]
     Indication: STREPTOCOCCAL INFECTION
     Dosage: UNK
     Route: 065
     Dates: start: 20131004, end: 20131018

REACTIONS (1)
  - Drug ineffective [Not Recovered/Not Resolved]
